FAERS Safety Report 18747082 (Version 1)
Quarter: 2021Q1

REPORT INFORMATION
  Report Type: Spontaneous
  Country: DE (occurrence: DE)
  Receive Date: 20210115
  Receipt Date: 20210115
  Transmission Date: 20210419
  Serious: Yes (Other)
  Sender: FDA-Public Use
  Company Number: DE-TORRENT-00019406

PATIENT
  Age: 1 Day
  Sex: Male
  Weight: 2 kg

DRUGS (3)
  1. PROPESS [Concomitant]
     Active Substance: DINOPROSTONE
     Indication: LABOUR INDUCTION
     Dosage: UNKNOWN
     Route: 064
     Dates: start: 20200507, end: 20200507
  2. ESCITALOPRAM [Suspect]
     Active Substance: ESCITALOPRAM OXALATE
     Indication: DEPRESSION
     Dosage: 2.5 MG/D
     Route: 064
     Dates: start: 20190822, end: 20200508
  3. GRIPPEIMPFSTOFF [Concomitant]
     Active Substance: INFLUENZA VIRUS VACCINE
     Indication: IMMUNISATION
     Dosage: UNKNOWN
     Route: 064
     Dates: start: 20200312, end: 20200312

REACTIONS (3)
  - Foetal exposure during pregnancy [Unknown]
  - Small for dates baby [Recovering/Resolving]
  - Infantile haemangioma [Unknown]

NARRATIVE: CASE EVENT DATE: 20200508
